FAERS Safety Report 9250839 (Version 2)
Quarter: 2013Q3

REPORT INFORMATION
  Report Type: Spontaneous
  Country: DE (occurrence: DE)
  Receive Date: 20130424
  Receipt Date: 20130809
  Transmission Date: 20140515
  Serious: Yes (Hospitalization, Other)
  Sender: FDA-Public Use
  Company Number: PHHY2013DE038056

PATIENT
  Sex: 0

DRUGS (5)
  1. DAFIRO HCT [Suspect]
     Indication: HYPERTENSION
     Dosage: 1 DF  (320 MG VALS / 10 MG AMLO / 25 MG HYDR), QD
     Route: 048
     Dates: start: 20120927, end: 201301
  2. BETA BLOCKING AGENTS [Concomitant]
     Dosage: UNK UKN, UNK
  3. INDOMETACIN [Concomitant]
     Indication: ARTHRALGIA
     Dosage: UNK UKN, UNK
  4. EUTHYROX [Concomitant]
     Dosage: UNK UKN, UNK
  5. METOPROLOL [Concomitant]
     Dosage: UNK UKN, UNK

REACTIONS (6)
  - Polyneuropathy [Not Recovered/Not Resolved]
  - Hypoaesthesia [Unknown]
  - Muscular weakness [Not Recovered/Not Resolved]
  - Myalgia [Not Recovered/Not Resolved]
  - Psoriatic arthropathy [Unknown]
  - Blood creatine phosphokinase increased [Recovered/Resolved]
